FAERS Safety Report 10445250 (Version 2)
Quarter: 2015Q2

REPORT INFORMATION
  Report Type: Spontaneous
  Country: US (occurrence: US)
  Receive Date: 20140910
  Receipt Date: 20150622
  Transmission Date: 20150821
  Serious: Yes (Hospitalization, Other)
  Sender: FDA-Public Use
  Company Number: US-BAYER-2014-133873

PATIENT
  Age: 24 Year
  Sex: Female
  Weight: 90.7 kg

DRUGS (2)
  1. MIRENA [Suspect]
     Active Substance: LEVONORGESTREL
     Indication: CONTRACEPTION
     Dosage: 20 MCG/24HR, CONT
     Route: 015
     Dates: start: 20090217, end: 20110909
  2. MIRENA [Suspect]
     Active Substance: LEVONORGESTREL
     Indication: CONTRACEPTION
     Dosage: 20 MCG/24HR, CONT
     Route: 015
     Dates: start: 20081231, end: 20120913

REACTIONS (8)
  - Uterine perforation [None]
  - Medical device pain [None]
  - Procedural pain [None]
  - Drug ineffective [None]
  - Ectopic pregnancy with contraceptive device [None]
  - Injury [None]
  - Post procedural discomfort [None]
  - Device use error [None]

NARRATIVE: CASE EVENT DATE: 2008
